FAERS Safety Report 9233461 (Version 1)
Quarter: 2013Q2

REPORT INFORMATION
  Report Type: Spontaneous
  Country: JP (occurrence: JP)
  Receive Date: 20130416
  Receipt Date: 20130416
  Transmission Date: 20140414
  Serious: Yes (Death, Hospitalization, Other)
  Sender: FDA-Public Use
  Company Number: JP-PFIZER INC-2013119150

PATIENT
  Age: 83 Year
  Sex: Male
  Weight: 68 kg

DRUGS (20)
  1. CAMPTO [Suspect]
     Indication: COLON CANCER
     Dosage: 215 MG/BODY, 1X/DAY
     Route: 041
     Dates: start: 20130109, end: 20130109
  2. CAMPTO [Suspect]
     Dosage: 215 MG, 1X/DAY
     Route: 041
     Dates: start: 20130130, end: 20130130
  3. ISOVORIN (LEVOFOLINATE CALCIUM) [Concomitant]
     Dosage: UNK
     Dates: start: 20130109, end: 20130109
  4. ISOVORIN (LEVOFOLINATE CALCIUM) [Concomitant]
     Dosage: UNK
     Dates: start: 20130130, end: 20130130
  5. 5-FU [Concomitant]
     Dosage: UNK
     Dates: start: 20130109, end: 20130109
  6. 5-FU [Concomitant]
     Dosage: UNK
     Dates: start: 20130130, end: 20130130
  7. AVASTIN [Concomitant]
     Dosage: UNK
     Dates: start: 20130109, end: 20130109
  8. AVASTIN [Concomitant]
     Dosage: UNK
     Dates: start: 20130130, end: 20130130
  9. ALOXI [Concomitant]
     Dosage: UNK
     Dates: start: 20130109, end: 20130130
  10. EMEND [Concomitant]
     Route: 048
  11. BAYASPIRIN [Concomitant]
     Route: 048
  12. PANALDINE [Concomitant]
     Route: 048
  13. LASIX [Concomitant]
     Route: 048
  14. HERBESSER R [Concomitant]
     Route: 048
  15. NORVASC [Concomitant]
     Route: 048
  16. ALDACTONE-A [Concomitant]
     Route: 048
  17. BARACLUDE [Concomitant]
     Route: 048
  18. URIEF [Concomitant]
     Route: 048
  19. ALOSENN [Concomitant]
  20. SORBITOL [Concomitant]

REACTIONS (3)
  - Circulatory collapse [Fatal]
  - Neutropenia [Fatal]
  - Septic shock [Fatal]
